FAERS Safety Report 18871856 (Version 1)
Quarter: 2021Q1

REPORT INFORMATION
  Report Type: Spontaneous
  Country: US (occurrence: US)
  Receive Date: 20210210
  Receipt Date: 20210210
  Transmission Date: 20210420
  Serious: Yes (Hospitalization, Other)
  Sender: FDA-Public Use
  Company Number: US-ASTELLAS-2021US004427

PATIENT
  Age: 45 Year
  Sex: Female

DRUGS (1)
  1. TACROLIMUS. [Suspect]
     Active Substance: TACROLIMUS
     Indication: RENAL AND PANCREAS TRANSPLANT
     Dosage: UNK UNK, UNKNOWN FREQ.
     Route: 065

REACTIONS (5)
  - Disseminated cryptococcosis [Recovered/Resolved]
  - Laryngeal cryptococcosis [Recovering/Resolving]
  - Meningitis cryptococcal [Recovered/Resolved]
  - Laryngeal web [Recovering/Resolving]
  - Disease recurrence [Recovering/Resolving]
